FAERS Safety Report 15674981 (Version 1)
Quarter: 2018Q4

REPORT INFORMATION
  Report Type: Spontaneous
  Country: PT (occurrence: PT)
  Receive Date: 20181130
  Receipt Date: 20181130
  Transmission Date: 20190205
  Serious: Yes (Other)
  Sender: FDA-Public Use
  Company Number: PT-ROCHE-2221822

PATIENT
  Age: 15 Year
  Sex: Male

DRUGS (1)
  1. RITUXIMAB. [Suspect]
     Active Substance: RITUXIMAB
     Indication: CYTOPENIA
     Route: 065

REACTIONS (12)
  - Off label use [Unknown]
  - Interstitial lung disease [Unknown]
  - Product use in unapproved indication [Unknown]
  - Fatigue [Unknown]
  - Hypogammaglobulinaemia [Unknown]
  - Mucormycosis [Unknown]
  - Weight decreased [Unknown]
  - Pneumonia [Unknown]
  - Lung disorder [Unknown]
  - Lymphadenopathy [Unknown]
  - Hyperplasia [Unknown]
  - Sinusitis [Unknown]
